FAERS Safety Report 9016443 (Version 1)
Quarter: 2013Q1

REPORT INFORMATION
  Report Type: Spontaneous
  Country: DE (occurrence: DE)
  Receive Date: 20130116
  Receipt Date: 20130116
  Transmission Date: 20140127
  Serious: Yes (Other)
  Sender: FDA-Public Use
  Company Number: DE-AMGEN-DEUSP2012076364

PATIENT
  Age: 64 Year
  Sex: Female
  Weight: 49 kg

DRUGS (16)
  1. NEULASTA [Suspect]
     Indication: PRODUCT USED FOR UNKNOWN INDICATION
     Dosage: 6 MG/0.6 ML, UNK
     Route: 058
     Dates: start: 20121101, end: 20121101
  2. CHEMOTHERAPEUTICS [Concomitant]
     Dosage: UNK
     Dates: start: 20121101
  3. PACLITAXEL [Concomitant]
     Dosage: 283 MG, UNK
     Dates: start: 20120830
  4. PACLITAXEL [Concomitant]
     Dosage: 283 MG, UNK
     Dates: start: 20120920
  5. PACLITAXEL [Concomitant]
     Dosage: 283 MG, UNK
     Dates: start: 20121011
  6. PACLITAXEL [Concomitant]
     Dosage: 280 MG, UNK
     Dates: start: 20121031
  7. PACLITAXEL [Concomitant]
     Dosage: 222 MG, UNK
     Dates: start: 20121122, end: 20121213
  8. CARBOPLATIN [Concomitant]
     Dosage: 700 MG, UNK
     Dates: start: 20120830
  9. CARBOPLATIN [Concomitant]
     Dosage: 650 MG, UNK
     Dates: start: 20120920
  10. CARBOPLATIN [Concomitant]
     Dosage: 530 MG, UNK
     Dates: start: 20121011
  11. CARBOPLATIN [Concomitant]
     Dosage: 490 MG, UNK
     Dates: start: 20121031
  12. CARBOPLATIN [Concomitant]
     Dosage: 466 MG, UNK
     Dates: start: 20121122, end: 20121213
  13. AVASTIN                            /01555201/ [Concomitant]
     Dosage: 750 MG, UNK
     Dates: start: 20120920
  14. AVASTIN                            /01555201/ [Concomitant]
     Dosage: 750 MG, UNK
     Dates: start: 20121011
  15. AVASTIN                            /01555201/ [Concomitant]
     Dosage: 750 MG, UNK
     Dates: start: 20121031
  16. AVASTIN                            /01555201/ [Concomitant]
     Dosage: 15 MG, UNK
     Dates: start: 20121122, end: 20121213

REACTIONS (4)
  - Hypersensitivity [Recovering/Resolving]
  - Pruritus [Recovering/Resolving]
  - Dyspnoea [Recovering/Resolving]
  - Erythema [Recovering/Resolving]
